FAERS Safety Report 10378349 (Version 1)
Quarter: 2014Q1

REPORT INFORMATION
  Report Type: Spontaneous
  Country: US (occurrence: None)
  Receive Date: 20140306
  Receipt Date: 20140306
  Transmission Date: 20141002
  Serious: Yes (Hospitalization)
  Sender: FDA-Public Use
  Company Number: 163-21880-13014673

PATIENT
  Age: 77 Year
  Sex: Female

DRUGS (11)
  1. REVLIMID (LENALIDOMIDE) (15 MILLIGRAM, CAPSULES) [Suspect]
     Indication: PLASMA CELL MYELOMA
     Route: 048
     Dates: start: 20121208
  2. ACETAMINOPHEN (PARACETAMOL) [Concomitant]
  3. ACYCLOVIR (ACICLOVIR) [Concomitant]
  4. ADULT LOW DOSE ASPIRIN (ACETYLSALICYLIC ACID) [Concomitant]
  5. AMLODIPINE BESYLATE (AMLODIPINE BESILATE) [Concomitant]
  6. COUMADIN (WARFARIN SODIUM) [Concomitant]
  7. DEXAMETHASONE [Concomitant]
  8. ELMIRON (PENTOSAN POLYSULFATE SODIUM) [Concomitant]
  9. ISOSORBIDE DINITRATE [Concomitant]
  10. LOSARTAN POTASSIUM [Concomitant]
  11. KLOR-CON (POTASSIUM CHLORIDE) [Concomitant]

REACTIONS (2)
  - Pulmonary thrombosis [None]
  - Pyrexia [None]
